FAERS Safety Report 20194646 (Version 1)
Quarter: 2021Q4

REPORT INFORMATION
  Report Type: Spontaneous
  Country: US (occurrence: US)
  Receive Date: 20211216
  Receipt Date: 20211216
  Transmission Date: 20220303
  Serious: Yes (Other)
  Sender: FDA-Public Use
  Company Number: US-LUPIN PHARMACEUTICALS INC.-2021-24726

PATIENT
  Age: 79 Year
  Sex: Male

DRUGS (6)
  1. TRIAMCINOLONE [Suspect]
     Active Substance: TRIAMCINOLONE
     Indication: Cystoid macular oedema
     Dosage: UNK
  2. AVASTIN [Suspect]
     Active Substance: BEVACIZUMAB
     Indication: Cystoid macular oedema
     Dosage: UNK
  3. EYLEA [Suspect]
     Active Substance: AFLIBERCEPT
     Indication: Cystoid macular oedema
     Dosage: UNK
     Route: 065
  4. ILUVIEN [Suspect]
     Active Substance: FLUOCINOLONE ACETONIDE
     Indication: Cystoid macular oedema
     Dosage: 0.19 MILLIGRAM
  5. KETOROLAC [Concomitant]
     Active Substance: KETOROLAC TROMETHAMINE
     Indication: Cystoid macular oedema
     Dosage: UNK
     Route: 065
  6. PREDNISOLONE [Concomitant]
     Active Substance: PREDNISOLONE
     Indication: Cystoid macular oedema
     Dosage: UNK
     Route: 061

REACTIONS (2)
  - Non-infectious endophthalmitis [Recovered/Resolved]
  - Off label use [Unknown]
